FAERS Safety Report 6175653-0 (Version None)
Quarter: 2009Q2

REPORT INFORMATION
  Report Type: 
  Country: None (occurrence: None)
  Receive Date: 20090501
  Receipt Date: 20090305
  Transmission Date: 20091009
  Serious: No
  Sender: FDA-Public Use
  Company Number: US-BAYER-200915430NA

PATIENT
  Age: 38 Year
  Sex: Female
  Weight: 84 kg

DRUGS (4)
  1. MIRENA [Suspect]
     Indication: CONTRACEPTION
     Dosage: CONTINUOUS
     Route: 015
     Dates: start: 20081204
  2. ADDERALL 10 [Concomitant]
  3. CLONAZEPAN [Concomitant]
  4. PAXIL [Concomitant]
     Indication: MIGRAINE

REACTIONS (1)
  - ACNE [None]
